FAERS Safety Report 11379870 (Version 1)
Quarter: 2015Q3

REPORT INFORMATION
  Report Type: Spontaneous
  Country: GB (occurrence: GB)
  Receive Date: 20150814
  Receipt Date: 20150814
  Transmission Date: 20151125
  Serious: Yes (Hospitalization)
  Sender: FDA-Public Use
  Company Number: GB-ASTRAZENECA-2015SE76242

PATIENT
  Age: 52 Year
  Sex: Male
  Weight: 66 kg

DRUGS (9)
  1. TRAMADOL. [Concomitant]
     Active Substance: TRAMADOL
  2. ATORVASTATIN [Concomitant]
     Active Substance: ATORVASTATIN
  3. GABAPENTIN. [Concomitant]
     Active Substance: GABAPENTIN
  4. SILDENAFIL. [Concomitant]
     Active Substance: SILDENAFIL
  5. ASPIRIN. [Concomitant]
     Active Substance: ASPIRIN
  6. METFORMIN [Concomitant]
     Active Substance: METFORMIN HYDROCHLORIDE
  7. RAMIPRIL. [Concomitant]
     Active Substance: RAMIPRIL
  8. FORXIGA [Suspect]
     Active Substance: DAPAGLIFLOZIN
     Indication: DIABETES MELLITUS INADEQUATE CONTROL
     Route: 048
     Dates: start: 20150415, end: 20150424
  9. ALLOPURINOL. [Concomitant]
     Active Substance: ALLOPURINOL

REACTIONS (2)
  - Hyperglycaemia [Recovered/Resolved]
  - Diabetic ketoacidosis [Recovered/Resolved]

NARRATIVE: CASE EVENT DATE: 20150424
